FAERS Safety Report 14563570 (Version 2)
Quarter: 2018Q2

REPORT INFORMATION
  Report Type: Spontaneous
  Country: AT (occurrence: AT)
  Receive Date: 20180222
  Receipt Date: 20180405
  Transmission Date: 20180711
  Serious: Yes (Other)
  Sender: FDA-Public Use
  Company Number: PHHY2017AT112939

PATIENT
  Age: 22 Year
  Sex: Female
  Weight: 62 kg

DRUGS (1)
  1. COSENTYX [Suspect]
     Active Substance: SECUKINUMAB
     Indication: PSORIASIS
     Dosage: 300 MG, Q4W
     Route: 058
     Dates: start: 20170403

REACTIONS (5)
  - Angioedema [Recovered/Resolved]
  - Guttate psoriasis [Unknown]
  - Pustular psoriasis [Recovered/Resolved]
  - Skin plaque [Unknown]
  - Psoriasis [Unknown]

NARRATIVE: CASE EVENT DATE: 20180207
